FAERS Safety Report 6223017-3 (Version None)
Quarter: 2009Q2

REPORT INFORMATION
  Report Type: 
  Country: None (occurrence: None)
  Receive Date: 20090611
  Receipt Date: 20090609
  Transmission Date: 20091009
  Serious: Yes (Congenital Anomaly)
  Sender: FDA-Public Use
  Company Number: FR-MERCK-0306FRA00084

PATIENT
  Age: 0 Day
  Sex: Female
  Weight: 4 kg

DRUGS (8)
  1. SINGULAIR [Suspect]
     Indication: ASTHMA
     Route: 064
     Dates: start: 20020501, end: 20030602
  2. BAMBUTEROL [Concomitant]
     Indication: ASTHMA
     Route: 064
  3. LORATADINE [Concomitant]
     Indication: RHINITIS ALLERGIC
     Route: 064
  4. AMBROXOL HYDROCHLORIDE [Concomitant]
     Route: 064
  5. BUDESONIDE [Concomitant]
     Route: 064
  6. ALBUTEROL SULFATE [Concomitant]
     Indication: ASTHMA
     Route: 064
  7. NITROFURANTOIN [Concomitant]
     Indication: URINARY TRACT INFECTION
     Route: 064
     Dates: start: 20030708, end: 20030718
  8. PHLOROGLUCINOL AND TRIMETHYLPHLOROGLUCINOL [Concomitant]
     Route: 064

REACTIONS (2)
  - CONGENITAL CYSTIC LUNG [None]
  - STRABISMUS [None]
